FAERS Safety Report 24564695 (Version 4)
Quarter: 2025Q1

REPORT INFORMATION
  Report Type: Spontaneous
  Country: BR (occurrence: BR)
  Receive Date: 20241030
  Receipt Date: 20250307
  Transmission Date: 20250408
  Serious: Yes (Other)
  Sender: JOHNSON AND JOHNSON
  Company Number: BR-JNJFOC-20241065294

PATIENT
  Sex: Male
  Weight: 98 kg

DRUGS (1)
  1. INFLIXIMAB [Suspect]
     Active Substance: INFLIXIMAB
     Indication: Crohn^s disease
     Route: 041

REACTIONS (5)
  - Hodgkin^s disease [Unknown]
  - Neoplasm [Not Recovered/Not Resolved]
  - Drug ineffective [Unknown]
  - Impaired healing [Unknown]
  - Skin disorder [Unknown]

NARRATIVE: CASE EVENT DATE: 20190101
